FAERS Safety Report 9690181 (Version 1)
Quarter: 2013Q4

REPORT INFORMATION
  Report Type: Spontaneous
  Country: FR (occurrence: FR)
  Receive Date: 20131115
  Receipt Date: 20131115
  Transmission Date: 20140711
  Serious: Yes (Hospitalization)
  Sender: FDA-Public Use
  Company Number: PHHY2013FR130114

PATIENT
  Age: 88 Year
  Sex: Male

DRUGS (2)
  1. TERBINAFINE [Suspect]
     Indication: ONYCHOMYCOSIS
     Dosage: UNK UKN, QD
     Route: 048
     Dates: end: 20131111
  2. SKENAN [Concomitant]
     Indication: SPINAL PAIN
     Dosage: 30 MG
     Route: 048

REACTIONS (3)
  - Muscular weakness [Not Recovered/Not Resolved]
  - Fall [Not Recovered/Not Resolved]
  - Cerebellar syndrome [Recovered/Resolved]
